FAERS Safety Report 21218352 (Version 1)
Quarter: 2022Q3

REPORT INFORMATION
  Report Type: Report from Study
  Country: CA (occurrence: CA)
  Receive Date: 20220816
  Receipt Date: 20220816
  Transmission Date: 20221027
  Serious: Yes (Other)
  Sender: FDA-Public Use
  Company Number: CA-PFIZER INC-202201056615

PATIENT
  Age: 60 Year
  Sex: Male

DRUGS (3)
  1. CELECOXIB [Suspect]
     Active Substance: CELECOXIB
     Indication: Arthritis
     Route: 065
  2. SILIQ [Suspect]
     Active Substance: BRODALUMAB
     Indication: Psoriasis
     Dosage: 210 MG, WEEKLY
     Route: 058
  3. SILIQ [Suspect]
     Active Substance: BRODALUMAB
     Dosage: 1 EVERY 2 WEEK
     Route: 058

REACTIONS (3)
  - Dry skin [Recovered/Resolved]
  - Erectile dysfunction [Recovered/Resolved]
  - Pruritus [Recovered/Resolved]
